FAERS Safety Report 6082972-5 (Version None)
Quarter: 2009Q1

REPORT INFORMATION
  Report Type: 
  Country: None (occurrence: None)
  Receive Date: 20090218
  Receipt Date: 20090214
  Transmission Date: 20090719
  Serious: No
  Sender: FDA-Public Use
  Company Number: US-B.I. PHARMACEUTICALS,INC./RIDGEFIELD-2009-BP-01938BP

PATIENT
  Sex: Female

DRUGS (2)
  1. ZANTAC 75 [Suspect]
     Indication: DYSPEPSIA
     Dosage: 75MG
     Route: 048
     Dates: end: 20090214
  2. DIOVAN [Concomitant]
     Indication: BLOOD PRESSURE
     Dosage: 40MG
     Route: 048
     Dates: start: 20070101

REACTIONS (3)
  - NAUSEA [None]
  - PRURITUS [None]
  - URTICARIA [None]
